FAERS Safety Report 9714203 (Version 1)
Quarter: 2013Q4

REPORT INFORMATION
  Report Type: Spontaneous
  Country: US (occurrence: US)
  Receive Date: 20131126
  Receipt Date: 20131126
  Transmission Date: 20140711
  Serious: Yes (Hospitalization)
  Sender: FDA-Public Use
  Company Number: US-GILEAD-2008-0019331

PATIENT
  Sex: Female
  Weight: 63.5 kg

DRUGS (16)
  1. LETAIRIS [Suspect]
     Indication: PULMONARY ARTERIAL HYPERTENSION
     Route: 048
     Dates: start: 20070922
  2. REVATIO [Concomitant]
  3. COUMADIN [Concomitant]
  4. LASIX [Concomitant]
  5. SPIRONOLACTONE [Concomitant]
  6. LOTENSIN [Concomitant]
  7. SYNTHROID [Concomitant]
  8. ADALAT CC [Concomitant]
  9. CALCITRIOL [Concomitant]
  10. ACTONEL [Concomitant]
  11. FOLIC ACID [Concomitant]
  12. FLONASE [Concomitant]
  13. CALCIUM [Concomitant]
  14. REGLAN [Concomitant]
  15. PREVACID [Concomitant]
  16. CLOTRIMAZOLE [Concomitant]
     Route: 061

REACTIONS (1)
  - Fluid retention [None]
